FAERS Safety Report 4496739-2 (Version None)
Quarter: 2004Q4

REPORT INFORMATION
  Report Type: 
  Country: None (occurrence: None)
  Receive Date: 20041109
  Receipt Date: 20040621
  Transmission Date: 20050328
  Serious: Yes (Hospitalization)
  Sender: FDA-Public Use
  Company Number: CH-ROCHE-371624

PATIENT
  Age: 52 Year
  Sex: Male
  Weight: 76 kg

DRUGS (7)
  1. PEG-INTERFERON ALFA 2A (RO 25-8310) [Suspect]
     Route: 058
     Dates: start: 20040114
  2. RIBAVIRIN [Suspect]
     Route: 048
     Dates: start: 20040114
  3. VALSARTAN [Concomitant]
  4. OMEPRAZOLE [Concomitant]
  5. DISULFIRAM [Concomitant]
  6. FLUNITRAZEPAM [Concomitant]
  7. TRAMADOL [Concomitant]
     Dosage: IF NECESSARY

REACTIONS (1)
  - GASTROOESOPHAGEAL REFLUX DISEASE [None]
